FAERS Safety Report 14340196 (Version 1)
Quarter: 2017Q4

REPORT INFORMATION
  Report Type: Report from Study
  Country: KR (occurrence: KR)
  Receive Date: 20171231
  Receipt Date: 20171231
  Transmission Date: 20180321
  Serious: Yes (Other)
  Sender: FDA-Public Use
  Company Number: KR-ROCHE-2046770

PATIENT
  Age: 68 Year
  Sex: Female

DRUGS (14)
  1. BEECOM [Concomitant]
     Dosage: 1TAB
     Route: 048
     Dates: start: 20121112
  2. LEGALON [Concomitant]
     Active Substance: DIETARY SUPPLEMENT\HERBALS\MILK THISTLE
     Route: 048
     Dates: start: 20160229
  3. CURAN [Concomitant]
     Active Substance: RANITIDINE HYDROCHLORIDE
     Route: 048
     Dates: start: 20150908, end: 20160128
  4. MOTILITONE [Concomitant]
     Active Substance: HERBALS
     Route: 048
     Dates: start: 20150908
  5. METHOTREXATE. [Concomitant]
     Active Substance: METHOTREXATE
     Indication: RHEUMATOID ARTHRITIS
     Route: 048
     Dates: start: 20080725, end: 20160401
  6. FOLIC ACID. [Concomitant]
     Active Substance: FOLIC ACID
     Route: 048
     Dates: start: 20090819
  7. TOCILIZUMAB. [Suspect]
     Active Substance: TOCILIZUMAB
     Indication: RHEUMATOID ARTHRITIS
     Route: 042
     Dates: start: 20151230
  8. FEROBA-YOU SR [Concomitant]
     Dosage: 1TAB
     Route: 048
     Dates: start: 20090918
  9. CAVID (SOUTH KOREA) [Concomitant]
     Dosage: 1TAB
     Route: 048
     Dates: start: 20111026
  10. EVISTA [Concomitant]
     Active Substance: RALOXIFENE HYDROCHLORIDE
     Indication: FIBROMYALGIA
     Route: 048
     Dates: start: 20120118
  11. JANUMET [Concomitant]
     Active Substance: METFORMIN HYDROCHLORIDE\SITAGLIPTIN PHOSPHATE
     Dosage: 1TAB
     Route: 048
     Dates: start: 20150114
  12. GLIATAMIN [Concomitant]
     Route: 048
     Dates: start: 20151230
  13. MADIPINE [Concomitant]
     Route: 048
     Dates: start: 20150728, end: 20160228
  14. URSA [Concomitant]
     Active Substance: URSODIOL
     Route: 048
     Dates: start: 20151103

REACTIONS (4)
  - Hypertension [Not Recovered/Not Resolved]
  - Pathological fracture [Not Recovered/Not Resolved]
  - Diabetic complication [Not Recovered/Not Resolved]
  - Osteoporosis [Not Recovered/Not Resolved]

NARRATIVE: CASE EVENT DATE: 20160404
